FAERS Safety Report 10613002 (Version 4)
Quarter: 2014Q4

REPORT INFORMATION
  Report Type: Spontaneous
  Country: DE (occurrence: DE)
  Receive Date: 20141127
  Receipt Date: 20141231
  Transmission Date: 20150529
  Serious: Yes (Other)
  Sender: FDA-Public Use
  Company Number: PHHY2014DE151427

PATIENT
  Age: 50 Year
  Sex: Female
  Weight: 48 kg

DRUGS (4)
  1. TIZANIDIN TEVA [Concomitant]
     Indication: MUSCLE SPASTICITY
     Dosage: 2 MG, PRN (AS NEEDED)
     Route: 048
  2. EXTAVIA [Suspect]
     Active Substance: INTERFERON BETA-1B
     Indication: SECONDARY PROGRESSIVE MULTIPLE SCLEROSIS
     Dosage: 250 UG, UNK
     Route: 058
     Dates: start: 2008
  3. L-THYROX HEXAL [Concomitant]
     Indication: HYPOTHYROIDISM
     Dosage: 75 UG, QD (1-0-0)
     Route: 048
  4. BACLOFEN. [Concomitant]
     Active Substance: BACLOFEN
     Indication: MUSCLE SPASTICITY
     Dosage: 25 MG, QD
     Route: 048

REACTIONS (6)
  - Hypokinesia [Recovered/Resolved]
  - Dizziness [Recovered/Resolved]
  - Urinary incontinence [Recovered/Resolved]
  - Abasia [Recovered/Resolved]
  - Paralysis [Recovered/Resolved]
  - Musculoskeletal stiffness [Recovered/Resolved]

NARRATIVE: CASE EVENT DATE: 20141125
